FAERS Safety Report 5231673-1 (Version None)
Quarter: 2007Q1

REPORT INFORMATION
  Report Type: 
  Country: None (occurrence: None)
  Receive Date: 20070202
  Receipt Date: 20070124
  Transmission Date: 20070707
  Serious: Yes (Hospitalization)
  Sender: FDA-Public Use
  Company Number: 235511

PATIENT
  Age: 73 Year
  Sex: Male

DRUGS (1)
  1. AVASTIN [Suspect]
     Indication: COLORECTAL CANCER
     Dosage: 650 MG, QOW, INTRAVENOUS
     Route: 042
     Dates: start: 20070118

REACTIONS (3)
  - CERVICAL SPINAL STENOSIS [None]
  - PARKINSONISM [None]
  - SUBDURAL HAEMATOMA [None]
